FAERS Safety Report 8811093 (Version 2)
Quarter: 2012Q4

REPORT INFORMATION
  Report Type: 
  Country: IL (occurrence: IL)
  Receive Date: 20120927
  Receipt Date: 20121122
  Transmission Date: 20130627
  Serious: Yes (Hospitalization)
  Sender: FDA-Public Use
  Company Number: PHHY2012IL025382

PATIENT
  Age: 82 Year
  Sex: Male

DRUGS (4)
  1. SANDOSTATIN LAR [Suspect]
     Indication: ACROMEGALY
     Dosage: 30 mg, UNK
     Dates: start: 20101101
  2. SANDOSTATIN LAR [Suspect]
     Dosage: 30 mg, UNK
     Dates: start: 20120226
  3. SANDOSTATIN LAR [Suspect]
     Dosage: 30 mg, every 28 days
     Dates: start: 20120919
  4. SANDOSTATIN LAR [Suspect]
     Dosage: 30 mg, every 28 days
     Route: 030
     Dates: start: 20121018

REACTIONS (1)
  - Procedural complication [Recovering/Resolving]
